FAERS Safety Report 5614554-0 (Version None)
Quarter: 2008Q1

REPORT INFORMATION
  Report Type: 
  Country: None (occurrence: None)
  Receive Date: 20080205
  Receipt Date: 20080110
  Transmission Date: 20080703
  Serious: No
  Sender: FDA-Public Use
  Company Number: US-BOEHRINGER INGELHEIM GMBH, GERMANY-2007-BP-25131BP

PATIENT
  Sex: Female

DRUGS (7)
  1. SPIRIVA [Suspect]
     Indication: EMPHYSEMA
     Route: 055
     Dates: start: 20061001, end: 20061201
  2. ADVAIR DISKUS 100/50 [Concomitant]
     Indication: EMPHYSEMA
  3. ALBUTEROL SULFATE [Concomitant]
     Indication: EMPHYSEMA
  4. COMBIVENT [Concomitant]
     Indication: EMPHYSEMA
     Route: 055
  5. AEROBID [Concomitant]
     Indication: EMPHYSEMA
  6. LEVOTHYROXINE SODIUM [Concomitant]
  7. MECLIZINE [Concomitant]

REACTIONS (2)
  - EPISTAXIS [None]
  - MALAISE [None]
